FAERS Safety Report 6527236-8 (Version None)
Quarter: 2010Q1

REPORT INFORMATION
  Report Type: 
  Country: None (occurrence: None)
  Receive Date: 20100104
  Receipt Date: 20100104
  Transmission Date: 20100710
  Serious: No
  Sender: FDA-Public Use
  Company Number: None

PATIENT
  Age: 76 Year
  Sex: Male
  Weight: 102.0593 kg

DRUGS (2)
  1. LEVAQUIN [Suspect]
     Indication: ANIMAL BITE
     Dosage: 7 TABLETS ONCE DAILY PO
     Route: 048
     Dates: start: 20091022, end: 20091224
  2. LEVAQUIN [Suspect]
     Indication: INFECTION
     Dosage: 7 TABLETS ONCE DAILY PO
     Route: 048
     Dates: start: 20091022, end: 20091224

REACTIONS (4)
  - BALANCE DISORDER [None]
  - GAIT DISTURBANCE [None]
  - PAIN IN EXTREMITY [None]
  - TENDON DISORDER [None]
